FAERS Safety Report 9314315 (Version 5)
Quarter: 2018Q4

REPORT INFORMATION
  Report Type: Spontaneous
  Country: GB (occurrence: GB)
  Receive Date: 20130529
  Receipt Date: 20181101
  Transmission Date: 20190205
  Serious: Yes (Hospitalization)
  Sender: FDA-Public Use
  Company Number: GB-TEVA-371682ISR

PATIENT
  Age: 66 Year
  Sex: Male

DRUGS (12)
  1. PREDNISOLONE. [Concomitant]
     Active Substance: PREDNISOLONE
     Dosage: 7.5 MILLIGRAM DAILY;
     Route: 048
     Dates: start: 201009
  2. METOCLOPRAMIDE. [Concomitant]
     Active Substance: METOCLOPRAMIDE
     Dosage: 30 - 60 MG A DAY
     Route: 048
     Dates: start: 20120921
  3. MORPHINE SULFATE. [Suspect]
     Active Substance: MORPHINE SULFATE
     Dosage: 100 MILLIGRAM DAILY;
     Route: 048
     Dates: start: 20121001
  4. MOVICOL [Concomitant]
     Active Substance: POLYETHYLENE GLYCOL 3350\POTASSIUM CHLORIDE\SODIUM BICARBONATE\SODIUM CHLORIDE
     Route: 048
     Dates: start: 20121010
  5. GEMCITABINE [Suspect]
     Active Substance: GEMCITABINE\GEMCITABINE HYDROCHLORIDE
     Route: 054
     Dates: start: 20120926, end: 20121128
  6. TAMSULOSIN [Concomitant]
     Active Substance: TAMSULOSIN
     Dosage: 400 MILLIGRAM DAILY;
     Route: 048
     Dates: start: 20120401
  7. DULCOLAX NOS [Concomitant]
     Active Substance: BISACODYL OR DOCUSATE SODIUM
     Route: 048
     Dates: start: 201206
  8. SUNITINIB MALATE. [Suspect]
     Active Substance: SUNITINIB MALATE
     Indication: TRANSITIONAL CELL CARCINOMA
     Route: 065
     Dates: start: 20120927, end: 20120929
  9. ORAMORPH [Suspect]
     Active Substance: MORPHINE SULFATE
     Dosage: AS NEEDED
     Route: 048
     Dates: start: 20120918
  10. CISPLATIN. [Suspect]
     Active Substance: CISPLATIN
     Route: 042
     Dates: start: 20120926, end: 20121121
  11. PARACETAMOL [Concomitant]
     Active Substance: ACETAMINOPHEN
     Dosage: 4 GRAM DAILY;
     Route: 048
     Dates: start: 201206
  12. HYDROCORTISONE SODIUM SUCCINATE [Concomitant]
     Active Substance: HYDROCORTISONE SODIUM SUCCINATE
     Dosage: 2 - 4 MG A DAY
     Route: 048
     Dates: start: 20121011

REACTIONS (3)
  - Vomiting [Recovered/Resolved]
  - Deep vein thrombosis [Not Recovered/Not Resolved]
  - Nausea [Not Recovered/Not Resolved]

NARRATIVE: CASE EVENT DATE: 20121011
